FAERS Safety Report 24466048 (Version 1)
Quarter: 2024Q4

REPORT INFORMATION
  Report Type: Report from Study
  Country: US (occurrence: US)
  Receive Date: 20241018
  Receipt Date: 20241018
  Transmission Date: 20250115
  Serious: No
  Sender: ROCHE
  Company Number: US-ROCHE-3530755

PATIENT
  Age: 65 Year
  Sex: Female
  Weight: 79.0 kg

DRUGS (10)
  1. XOLAIR [Suspect]
     Active Substance: OMALIZUMAB
     Indication: Nasal polyps
     Route: 058
  2. XOLAIR [Suspect]
     Active Substance: OMALIZUMAB
  3. ALBUTEROL SULFATE [Concomitant]
     Active Substance: ALBUTEROL SULFATE
     Dosage: HFA 108 (90 BASE) MCG/ACT INHALATION AEROSOL SOLUTION; INHALE 1 TO 2 PUFFS BY MOUTH EVERY 4 TO 6 HOU
     Route: 048
  4. BUDESONIDE [Concomitant]
     Active Substance: BUDESONIDE
     Dosage: 1 MG/2ML. INHALATION SUSPENSION, USS ONE RESPUTE IN YOUR SELLINE RINSE ONCE DAILY; THERAPY: 30/NOV/2
  5. EVISTA [Concomitant]
     Active Substance: RALOXIFENE HYDROCHLORIDE
     Dosage: EVISTE TABS (RALOXIFENE HCI); THERAPY: (RECORDED: 21/JUL/2021) TO RECORDED
  6. FISH OIL [Concomitant]
     Active Substance: FISH OIL
     Dosage: THERAPY: 29/MAR/2022 TO RECORDED
     Route: 048
  7. FLUTICASONE PROPIONATE [Concomitant]
     Active Substance: FLUTICASONE PROPIONATE
     Dosage: 50 MCG/ACT NASAL SUSPENSION; USE 1 TO 2 SPRAYS IN EACH NOSTRIL ONCE DAILY; THERAPY: 30MAR2023 TO (LA
  8. IPRATROPIUM BROMIDE [Concomitant]
     Active Substance: IPRATROPIUM BROMIDE
     Dosage: 0.06% NASAL IPRATROPIUM BROMIDE SOLUTION; USE 1-2 SPRAYS IN EACH NOSTRIL 2 TO 3 TIMES DAILY AS NEEDE
  9. LEVOTHYROXINE SODIUM [Concomitant]
     Active Substance: LEVOTHYROXINE SODIUM
     Dosage: 100 MCG ORAL TABLET; TAKE 1 TABLET BY MOUTH ONCE DAILY, THERAPY: 02/MAR/2022 TO (EVALUATE:05/JUL/202
  10. MELOXICAM [Concomitant]
     Active Substance: MELOXICAM
     Dosage: MELOXICAM 15 MG ORAL TABLET; TAKE 1 TABLET DAILY AS NEEDED; THERAPY: 09/JAN/2024 TO RECORDED

REACTIONS (5)
  - Red cell distribution width increased [Unknown]
  - Mean platelet volume increased [Unknown]
  - Blood urea nitrogen/creatinine ratio increased [Unknown]
  - Blood immunoglobulin E increased [Unknown]
  - Off label use [Unknown]
